FAERS Safety Report 8978486 (Version 1)
Quarter: 2012Q4

REPORT INFORMATION
  Report Type: 
  Country: EC (occurrence: EC)
  Receive Date: 20121220
  Receipt Date: 20121220
  Transmission Date: 20130627
  Serious: Yes (Other)
  Sender: FDA-Public Use
  Company Number: PHHY2012EC117561

PATIENT
  Sex: Male

DRUGS (1)
  1. DIOVAN HCT [Suspect]
     Dosage: 1 DF(80 mg vals/ 12.5 mg HCT), QD
     Route: 048
     Dates: start: 20120530

REACTIONS (2)
  - Neoplasm prostate [Not Recovered/Not Resolved]
  - Bladder neoplasm [Not Recovered/Not Resolved]
